FAERS Safety Report 23312758 (Version 1)
Quarter: 2023Q4

REPORT INFORMATION
  Report Type: Other
  Country: IN (occurrence: None)
  Receive Date: 20231219
  Receipt Date: 20231219
  Transmission Date: 20240110
  Serious: Yes (Death)
  Sender: FDA-Public Use
  Company Number: IN-ROCHE-3366423

PATIENT
  Age: 72 Year
  Sex: Male

DRUGS (1)
  1. TECENTRIQ [Suspect]
     Active Substance: ATEZOLIZUMAB
     Indication: Neuroendocrine carcinoma of prostate
     Dosage: 2ND CYCLE OF TECENTRIQ WAS SCHEDULED ON 20TH DAY INSTEAD OF 21 DAYS.
     Route: 041
     Dates: start: 20230528

REACTIONS (4)
  - Death [Fatal]
  - Neurological symptom [Unknown]
  - Off label use [Unknown]
  - Off label use [Unknown]

NARRATIVE: CASE EVENT DATE: 20231215
